FAERS Safety Report 6608285-8 (Version None)
Quarter: 2010Q1

REPORT INFORMATION
  Report Type: 
  Country: None (occurrence: None)
  Receive Date: 20100301
  Receipt Date: 20100218
  Transmission Date: 20100710
  Serious: Yes (Hospitalization, Other)
  Sender: FDA-Public Use
  Company Number: FI-JNJFOC-20070600093

PATIENT
  Sex: Male

DRUGS (7)
  1. REMICADE [Suspect]
     Indication: UVEITIS
     Route: 042
  2. REMICADE [Suspect]
     Route: 042
  3. REMICADE [Suspect]
     Route: 042
  4. PARACETAMOL [Concomitant]
     Indication: PREMEDICATION
  5. CETIRIZINE HCL [Concomitant]
     Indication: PREMEDICATION
  6. METHOTREXATE [Concomitant]
  7. METHYLPREDNISOLONE [Concomitant]
     Indication: PREMEDICATION

REACTIONS (5)
  - ANAPHYLACTIC REACTION [None]
  - DYSPNOEA [None]
  - HEADACHE [None]
  - INFUSION RELATED REACTION [None]
  - PALLOR [None]
